FAERS Safety Report 4627106-6 (Version None)
Quarter: 2005Q1

REPORT INFORMATION
  Report Type: 
  Country: None (occurrence: None)
  Receive Date: 20050331
  Receipt Date: 20050321
  Transmission Date: 20050727
  Serious: Yes (Other)
  Sender: FDA-Public Use
  Company Number: 2005047991

PATIENT
  Age: 76 Year
  Sex: Male

DRUGS (3)
  1. BEXTRA [Suspect]
     Indication: ILL-DEFINED DISORDER
     Dosage: 10 MG (10 MG, 1 IN 1 D), ORAL
     Route: 048
     Dates: end: 20040101
  2. FEXOFENADINE HYDROCHLORIDE [Concomitant]
  3. DILTIAZEM [Concomitant]

REACTIONS (2)
  - JOINT SWELLING [None]
  - RASH [None]
